FAERS Safety Report 16365197 (Version 6)
Quarter: 2024Q1

REPORT INFORMATION
  Report Type: Report from Study
  Country: CA (occurrence: CA)
  Receive Date: 20190529
  Receipt Date: 20240221
  Transmission Date: 20240410
  Serious: Yes (Hospitalization, Other)
  Sender: FDA-Public Use
  Company Number: CA-GLAXOSMITHKLINE-CA2019GSK056336

PATIENT

DRUGS (19)
  1. ALBUTEROL SULFATE [Suspect]
     Active Substance: ALBUTEROL SULFATE
     Indication: Product used for unknown indication
     Dosage: UNK
  2. NUCALA [Suspect]
     Active Substance: MEPOLIZUMAB
     Indication: Asthma
     Dosage: 100 MG, MO
     Dates: start: 20180131
  3. CEFTRIAXONE [Suspect]
     Active Substance: CEFTRIAXONE\CEFTRIAXONE SODIUM
     Indication: Product used for unknown indication
     Dosage: UNK
  4. CEFTRIAXONE SODIUM [Suspect]
     Active Substance: CEFTRIAXONE SODIUM
     Indication: Product used for unknown indication
     Dosage: UNK
  5. SINGULAIR [Suspect]
     Active Substance: MONTELUKAST SODIUM
     Indication: Product used for unknown indication
     Dosage: 10 MG
  6. AZITHROMYCIN [Suspect]
     Active Substance: AZITHROMYCIN
     Indication: Product used for unknown indication
     Dosage: UNK
  7. SYMBICORT [Suspect]
     Active Substance: BUDESONIDE\FORMOTEROL FUMARATE DIHYDRATE
     Indication: Product used for unknown indication
     Dosage: 2 MG
     Route: 055
  8. XOLAIR [Suspect]
     Active Substance: OMALIZUMAB
     Indication: Product used for unknown indication
     Dosage: 150 MG
  9. RUPATADINE FUMARATE [Suspect]
     Active Substance: RUPATADINE FUMARATE
     Indication: Product used for unknown indication
     Dosage: UNK
  10. TAMIFLU [Suspect]
     Active Substance: OSELTAMIVIR PHOSPHATE
     Indication: Product used for unknown indication
     Dosage: UNK
  11. PREDNISONE [Suspect]
     Active Substance: PREDNISONE
     Indication: Product used for unknown indication
     Dosage: UNK
  12. RUPATADINE [Suspect]
     Active Substance: RUPATADINE
     Indication: Product used for unknown indication
     Dosage: 10 MG
  13. PULMICORT TURBUHALER [Suspect]
     Active Substance: BUDESONIDE
     Indication: Product used for unknown indication
     Dosage: UNK
  14. RUPATADINE FUMARATE [Suspect]
     Active Substance: RUPATADINE FUMARATE
     Indication: Product used for unknown indication
     Dosage: UNK
  15. BUDESONIDE [Suspect]
     Active Substance: BUDESONIDE
     Indication: Product used for unknown indication
     Dosage: 2 MG
  16. OMALIZUMAB [Suspect]
     Active Substance: OMALIZUMAB
     Indication: Product used for unknown indication
     Dosage: 150 MG
  17. AZITHROMYCIN MONOHYDRATE [Suspect]
     Active Substance: AZITHROMYCIN MONOHYDRATE
     Dosage: UNK
  18. BUDESONIDE\FORMOTEROL FUMARATE [Suspect]
     Active Substance: BUDESONIDE\FORMOTEROL FUMARATE
     Indication: Product used for unknown indication
     Dosage: UNK
  19. AZITHROMYCIN ANHYDROUS [Suspect]
     Active Substance: AZITHROMYCIN ANHYDROUS
     Indication: Product used for unknown indication
     Dosage: UNK

REACTIONS (27)
  - Dyspnoea [Unknown]
  - Lung disorder [Unknown]
  - Pulmonary function test abnormal [Unknown]
  - Wheezing [Unknown]
  - Breath sounds abnormal [Unknown]
  - Cough [Unknown]
  - Nasal polyps [Unknown]
  - Urticaria [Unknown]
  - Vasculitis [Unknown]
  - Eosinophilia [Unknown]
  - Rhinorrhoea [Unknown]
  - Blood lactic acid increased [Unknown]
  - Blood potassium decreased [Unknown]
  - Chest X-ray abnormal [Unknown]
  - Asthma [Unknown]
  - Platelet count increased [Unknown]
  - Loss of personal independence in daily activities [Unknown]
  - Rhinitis allergic [Unknown]
  - Nasal congestion [Unknown]
  - Sneezing [Unknown]
  - Lacrimation increased [Unknown]
  - Eye pruritus [Unknown]
  - Upper-airway cough syndrome [Unknown]
  - Ear pruritus [Unknown]
  - Full blood count abnormal [Unknown]
  - Chest discomfort [Unknown]
  - Drug ineffective [Unknown]
